FAERS Safety Report 9128425 (Version 1)
Quarter: 2013Q1

REPORT INFORMATION
  Report Type: Spontaneous
  Country: US (occurrence: US)
  Receive Date: 20130228
  Receipt Date: 20130228
  Transmission Date: 20140127
  Serious: Yes (Disabling, Other)
  Sender: FDA-Public Use
  Company Number: US-PFIZER INC-2013070604

PATIENT
  Age: 68 Year
  Sex: Female
  Weight: 66 kg

DRUGS (2)
  1. LYRICA [Suspect]
     Indication: FIBROMYALGIA
     Dosage: 100 MG, 3X/DAY
  2. LEVETIRACETAM [Concomitant]
     Indication: CONVULSION
     Dosage: 500 MG, EVERY 12 HOURS

REACTIONS (2)
  - Blindness unilateral [Not Recovered/Not Resolved]
  - Brain neoplasm [Not Recovered/Not Resolved]
